FAERS Safety Report 18195625 (Version 2)
Quarter: 2020Q3

REPORT INFORMATION
  Report Type: Report from Study
  Country: US (occurrence: US)
  Receive Date: 20200826
  Receipt Date: 20200908
  Transmission Date: 20201103
  Serious: No
  Sender: FDA-Public Use
  Company Number: NVSC2020US234755

PATIENT
  Sex: Female

DRUGS (1)
  1. GILENYA [Suspect]
     Active Substance: FINGOLIMOD HYDROCHLORIDE
     Indication: MULTIPLE SCLEROSIS
     Dosage: 0.5 MG, QD
     Route: 048
     Dates: start: 20200613

REACTIONS (8)
  - Urinary incontinence [Unknown]
  - Gait disturbance [Unknown]
  - Gait inability [Unknown]
  - Tremor [Unknown]
  - Pain [Unknown]
  - Hypertension [Unknown]
  - Malaise [Unknown]
  - Speech disorder [Unknown]
